FAERS Safety Report 23540728 (Version 1)
Quarter: 2024Q1

REPORT INFORMATION
  Report Type: Spontaneous
  Country: US (occurrence: US)
  Receive Date: 20240219
  Receipt Date: 20240219
  Transmission Date: 20240410
  Serious: No
  Sender: FDA-Public Use
  Company Number: US-Stemline Therapeutics, Inc.-2023ST005118

PATIENT
  Age: 67 Year
  Sex: Female

DRUGS (1)
  1. ORSERDU [Suspect]
     Active Substance: ELACESTRANT
     Indication: Breast cancer metastatic
     Dosage: 86 MG 3 TABLETS ONCE DAILY
     Route: 048
     Dates: start: 2023

REACTIONS (4)
  - Influenza like illness [Unknown]
  - Malaise [Unknown]
  - Hepatic enzyme increased [Unknown]
  - Back pain [Unknown]
